FAERS Safety Report 16059205 (Version 5)
Quarter: 2020Q1

REPORT INFORMATION
  Report Type: Report from Study
  Country: US (occurrence: US)
  Receive Date: 20190311
  Receipt Date: 20200115
  Transmission Date: 20200409
  Serious: Yes (Hospitalization, Other)
  Sender: FDA-Public Use
  Company Number: US-OTSUKA-2019_006868

PATIENT
  Age: 26 Year
  Sex: Male

DRUGS (5)
  1. ARIPIPRAZOLE. [Suspect]
     Active Substance: ARIPIPRAZOLE
     Indication: SUBSTANCE DEPENDENCE
     Dosage: 400 MG, QM
     Route: 030
     Dates: start: 201512
  2. ABILIFY [Suspect]
     Active Substance: ARIPIPRAZOLE
     Indication: PSYCHOTIC DISORDER
     Dosage: UNK
     Route: 048
  3. ARIPIPRAZOLE. [Suspect]
     Active Substance: ARIPIPRAZOLE
     Indication: PSYCHOTIC DISORDER
  4. MULTIPLE VITAMINS [Concomitant]
     Active Substance: VITAMINS
     Indication: PRODUCT USED FOR UNKNOWN INDICATION
     Dosage: UNK
     Route: 065
  5. ABILIFY [Suspect]
     Active Substance: ARIPIPRAZOLE
     Dosage: 15 MG, QD
     Route: 048
     Dates: start: 20190118, end: 2019

REACTIONS (12)
  - Inability to afford medication [Unknown]
  - Product dose omission [Unknown]
  - Tachyphrenia [Not Recovered/Not Resolved]
  - Hyperhidrosis [Unknown]
  - Psychiatric decompensation [Recovered/Resolved]
  - Feeling abnormal [Recovered/Resolved]
  - Psychotic disorder [Recovered/Resolved]
  - Impaired work ability [Not Recovered/Not Resolved]
  - Drug ineffective [Unknown]
  - Insurance issue [Unknown]
  - Delusion [Recovered/Resolved]
  - Product use in unapproved indication [Unknown]

NARRATIVE: CASE EVENT DATE: 201512
